FAERS Safety Report 23263331 (Version 1)
Quarter: 2023Q4

REPORT INFORMATION
  Report Type: Spontaneous
  Country: BR (occurrence: BR)
  Receive Date: 20231205
  Receipt Date: 20231205
  Transmission Date: 20240110
  Serious: Yes (Other)
  Sender: FDA-Public Use
  Company Number: BR-ORGANON-O2311BRA002486

PATIENT
  Age: 50 Year
  Sex: Female
  Weight: 68 kg

DRUGS (7)
  1. ETONOGESTREL [Suspect]
     Active Substance: ETONOGESTREL
     Indication: Contraception
     Dosage: 1 IMPLANT
     Route: 059
     Dates: start: 20191029
  2. CYANOCOBALAMIN [Concomitant]
     Active Substance: CYANOCOBALAMIN
     Indication: Metabolic surgery
     Dosage: 1 INJECTION PER MONTH, EVERY 30 DAYS OF CONTINUOUS USE
     Dates: start: 201901
  3. VITAMIN D NOS [Concomitant]
     Active Substance: VITAMIN D NOS
     Indication: Metabolic surgery
     Dosage: UNK
     Route: 048
     Dates: start: 201901
  4. FISH OIL [Concomitant]
     Active Substance: FISH OIL
     Indication: Metabolic surgery
     Dosage: 2 CAPSULES PER DAY
     Dates: start: 201901
  5. CALCIUM [Concomitant]
     Active Substance: CALCIUM
     Indication: Metabolic surgery
     Dosage: 1 CAPSULE PER DAY
     Dates: start: 201901
  6. MINERALS\VITAMINS [Concomitant]
     Active Substance: MINERALS\VITAMINS
     Indication: Metabolic surgery
     Dosage: UNK
     Dates: start: 201901
  7. DESOGESTREL [Concomitant]
     Active Substance: DESOGESTREL
     Dosage: UNK
     Route: 048

REACTIONS (2)
  - Hernia [Not Recovered/Not Resolved]
  - Incorrect product administration duration [Unknown]

NARRATIVE: CASE EVENT DATE: 20210101
